FAERS Safety Report 7278427-2 (Version None)
Quarter: 2011Q1

REPORT INFORMATION
  Report Type: 
  Country: None (occurrence: None)
  Receive Date: 20110207
  Receipt Date: 20110201
  Transmission Date: 20110831
  Serious: No
  Sender: FDA-Public Use
  Company Number: US-ELI_LILLY_AND_COMPANY-US201012001789

PATIENT
  Sex: Female

DRUGS (2)
  1. NEURONTIN [Concomitant]
     Dosage: 300 MG, 3/D
     Dates: end: 20090901
  2. CYMBALTA [Suspect]
     Indication: DIABETIC NEUROPATHY
     Dosage: 60 MG, UNK
     Dates: end: 20100901

REACTIONS (1)
  - NO ADVERSE EVENT [None]
